FAERS Safety Report 10601955 (Version 1)
Quarter: 2014Q4

REPORT INFORMATION
  Report Type: Spontaneous
  Country: US (occurrence: US)
  Receive Date: 20141124
  Receipt Date: 20141124
  Transmission Date: 20150529
  Serious: No
  Sender: FDA-Public Use
  Company Number: US-PFIZER INC-2014318096

PATIENT
  Age: 2 Year
  Sex: Male
  Weight: 13 kg

DRUGS (1)
  1. ADVIL [Suspect]
     Active Substance: IBUPROFEN
     Dosage: ONE CAPSULE OF 200MG, SINGLE
     Route: 048
     Dates: start: 20141115, end: 20141115

REACTIONS (3)
  - Accidental exposure to product by child [Unknown]
  - Ocular hyperaemia [Unknown]
  - Retching [Unknown]

NARRATIVE: CASE EVENT DATE: 20141115
